APPROVED DRUG PRODUCT: ONDANSETRON
Active Ingredient: ONDANSETRON
Strength: 8MG
Dosage Form/Route: TABLET, ORALLY DISINTEGRATING;ORAL
Application: A078602 | Product #002
Applicant: SUN PHARMACEUTICAL INDUSTRIES LTD
Approved: Feb 24, 2011 | RLD: No | RS: No | Type: DISCN